FAERS Safety Report 4694770-5 (Version None)
Quarter: 2005Q2

REPORT INFORMATION
  Report Type: 
  Country: None (occurrence: None)
  Receive Date: 20050620
  Receipt Date: 20050609
  Transmission Date: 20051028
  Serious: Yes (Hospitalization)
  Sender: FDA-Public Use
  Company Number: FR-BRISTOL-MYERS SQUIBB COMPANY-12998696

PATIENT
  Age: 69 Year
  Sex: Male

DRUGS (2)
  1. PRAVACHOL [Suspect]
     Route: 048
     Dates: start: 20050407, end: 20050411
  2. STILNOX [Concomitant]

REACTIONS (4)
  - AGITATION [None]
  - ALANINE AMINOTRANSFERASE INCREASED [None]
  - ASPARTATE AMINOTRANSFERASE INCREASED [None]
  - DISORIENTATION [None]
